FAERS Safety Report 9379037 (Version 4)
Quarter: 2014Q1

REPORT INFORMATION
  Report Type: Spontaneous
  Country: US (occurrence: US)
  Receive Date: 20130702
  Receipt Date: 20140306
  Transmission Date: 20141002
  Serious: Yes (Death, Other)
  Sender: FDA-Public Use
  Company Number: US-BRISTOL-MYERS SQUIBB COMPANY-19051986

PATIENT
  Age: 73 Year
  Sex: Female

DRUGS (13)
  1. BYETTA [Suspect]
     Indication: TYPE 2 DIABETES MELLITUS
     Dosage: LAST DOSE ON MAY10
     Dates: start: 20090424, end: 201005
  2. HUMALOG [Suspect]
  3. ALPRAZOLAM [Concomitant]
     Dosage: 0.5MG TAB
  4. GLYBURIDE [Concomitant]
     Dosage: GLYBURIDE 6MG TAB
  5. DIOVAN [Concomitant]
  6. ASPIRIN [Concomitant]
  7. LASIX [Concomitant]
  8. NEURONTIN [Concomitant]
  9. LEVEMIR [Concomitant]
  10. LIPITOR [Concomitant]
  11. COREG [Concomitant]
  12. MORPHINE [Concomitant]
  13. CODEINE [Concomitant]

REACTIONS (1)
  - Pancreatic carcinoma [Fatal]
